FAERS Safety Report 14843556 (Version 3)
Quarter: 2019Q4

REPORT INFORMATION
  Report Type: Spontaneous
  Country: US (occurrence: US)
  Receive Date: 20180503
  Receipt Date: 20191008
  Transmission Date: 20200122
  Serious: Yes (Other)
  Sender: FDA-Public Use
  Company Number: US-ELI_LILLY_AND_COMPANY-US201804013834

PATIENT
  Sex: Male

DRUGS (8)
  1. VIAGRA [Suspect]
     Active Substance: SILDENAFIL CITRATE
     Indication: ERECTILE DYSFUNCTION
     Dosage: 100 MG, WEEKLY (1/W)
     Route: 065
     Dates: start: 19981103, end: 19990703
  2. VIAGRA [Suspect]
     Active Substance: SILDENAFIL CITRATE
     Dosage: 100 MG, WEEKLY (1/W)
     Route: 065
     Dates: start: 20070210, end: 20070430
  3. CIALIS [Suspect]
     Active Substance: TADALAFIL
     Dosage: 5 MG, DAILY
     Route: 065
     Dates: start: 20090813, end: 20140624
  4. VIAGRA [Suspect]
     Active Substance: SILDENAFIL CITRATE
     Dosage: 100 MG, WEEKLY (1/W)
     Route: 065
     Dates: start: 20041213, end: 20051029
  5. VIAGRA [Suspect]
     Active Substance: SILDENAFIL CITRATE
     Dosage: 20 MG, WEEKLY (1/W)
     Route: 065
     Dates: start: 20111005, end: 20151005
  6. LEVITRA [Concomitant]
     Active Substance: VARDENAFIL HYDROCHLORIDE
     Indication: ERECTILE DYSFUNCTION
     Dosage: 20 MG, BID
     Dates: start: 20060523, end: 20061019
  7. FLOMAX [Concomitant]
     Active Substance: TAMSULOSIN HYDROCHLORIDE
     Indication: BENIGN PROSTATIC HYPERPLASIA
     Dosage: 0.4 MG, DAILY
     Dates: start: 20131226
  8. CIALIS [Suspect]
     Active Substance: TADALAFIL
     Indication: ERECTILE DYSFUNCTION
     Dosage: 20 MG, WEEKLY (1/W)
     Route: 065
     Dates: start: 20051127, end: 20090414

REACTIONS (1)
  - Malignant melanoma in situ [Unknown]

NARRATIVE: CASE EVENT DATE: 20150807
